FAERS Safety Report 7750664-X (Version None)
Quarter: 2011Q3

REPORT INFORMATION
  Report Type: 
  Country: None (occurrence: None)
  Receive Date: 20110914
  Receipt Date: 20110909
  Transmission Date: 20111222
  Serious: Yes (Hospitalization)
  Sender: FDA-Public Use
  Company Number: NZ-GLAXOSMITHKLINE-B0746475A

PATIENT
  Age: 68 Year
  Sex: Male

DRUGS (4)
  1. AGOMELATINE [Concomitant]
     Route: 065
  2. LITHIUM [Concomitant]
     Dosage: 150MG TWICE PER DAY
     Route: 065
  3. GABAPENTIN [Concomitant]
     Indication: TINNITUS
     Route: 065
  4. TROBALT [Suspect]
     Indication: TINNITUS
     Route: 065
     Dates: start: 20110801

REACTIONS (9)
  - FEAR [None]
  - FEELING OF RELAXATION [None]
  - HEART RATE INCREASED [None]
  - VISUAL IMPAIRMENT [None]
  - CONFUSIONAL STATE [None]
  - HYPERTENSION [None]
  - SPEECH DISORDER [None]
  - GAIT DISTURBANCE [None]
  - AMNESIA [None]
